FAERS Safety Report 17517067 (Version 1)
Quarter: 2020Q1

REPORT INFORMATION
  Report Type: Spontaneous
  Country: US (occurrence: US)
  Receive Date: 20200307
  Receipt Date: 20200307
  Transmission Date: 20200409
  Serious: Yes (Other)
  Sender: FDA-Public Use
  Company Number: None

PATIENT
  Age: 40 Year
  Sex: Female
  Weight: 90 kg

DRUGS (3)
  1. INJECTAFER [Suspect]
     Active Substance: FERRIC CARBOXYMALTOSE
     Indication: IRON DEFICIENCY ANAEMIA
     Dosage: ?          QUANTITY:1 INFUSION;OTHER FREQUENCY:ONCE A WEEK;?
     Route: 042
     Dates: start: 20200205, end: 20200218
  2. PRENATAL VITAMIN [Concomitant]
     Active Substance: VITAMINS
  3. VITAMIN D [Concomitant]
     Active Substance: VITAMIN D NOS

REACTIONS (3)
  - Fatigue [None]
  - Hypophosphataemia [None]
  - Muscular weakness [None]

NARRATIVE: CASE EVENT DATE: 20200217
